FAERS Safety Report 9266179 (Version 2)
Quarter: 2013Q2

REPORT INFORMATION
  Report Type: Spontaneous
  Country: US (occurrence: US)
  Receive Date: 20130502
  Receipt Date: 20130625
  Transmission Date: 20140414
  Serious: No
  Sender: FDA-Public Use
  Company Number: US-009507513-1304USA015168

PATIENT
  Age: 56 Year
  Sex: Male

DRUGS (1)
  1. STROMECTOL [Suspect]
     Indication: PROPHYLAXIS
     Dosage: 4 DF, HS
     Route: 048
     Dates: start: 201204

REACTIONS (8)
  - Nasal discharge discolouration [Recovering/Resolving]
  - Oral discharge [Recovering/Resolving]
  - Skin lesion [Recovering/Resolving]
  - Rash [Recovering/Resolving]
  - Scar [Recovering/Resolving]
  - Oedema [Recovering/Resolving]
  - Local swelling [Recovering/Resolving]
  - Pigmentation disorder [Recovering/Resolving]
